FAERS Safety Report 15737245 (Version 1)
Quarter: 2018Q4

REPORT INFORMATION
  Report Type: Report from Study
  Country: CN (occurrence: CN)
  Receive Date: 20181218
  Receipt Date: 20181218
  Transmission Date: 20190205
  Serious: Yes (Other)
  Sender: FDA-Public Use
  Company Number: CN-OTSUKA-2018_039126

PATIENT
  Age: 12 Year
  Sex: Male

DRUGS (7)
  1. BUSULFAN. [Suspect]
     Active Substance: BUSULFAN
     Indication: TRANSPLANT
     Dosage: 0.8 MG/KG, 1 IN 6 HOUR
     Route: 065
  2. RITUXIMAB. [Suspect]
     Active Substance: RITUXIMAB
     Indication: TRANSPLANT
     Dosage: 375 MG/M2, QD
     Route: 065
  3. CYCLOPHOSPHAMIDE. [Suspect]
     Active Substance: CYCLOPHOSPHAMIDE
     Indication: TRANSPLANT
     Dosage: IN 1 DAY
     Route: 065
  4. CYTARABINE. [Suspect]
     Active Substance: CYTARABINE
     Indication: TRANSPLANT
     Dosage: 1 IN 12 HOUR
     Route: 065
  5. SEMUSTINE [Suspect]
     Active Substance: SEMUSTINE
     Indication: TRANSPLANT
     Dosage: 200 MG/M2, IN 1 DAY
     Route: 065
  6. DECITABINE. [Suspect]
     Active Substance: DECITABINE
     Indication: ACUTE MYELOID LEUKAEMIA
     Dosage: 20 MG/M2, 1 IN 1 DAY FOR 10 DAYS
     Route: 041
  7. ANTITHYMOCYTE IMMUNOGLOBULIN [Suspect]
     Active Substance: THYMOCYTE IMMUNE GLOBULIN NOS
     Indication: TRANSPLANT
     Dosage: 2.5 MG/KG, QD
     Route: 065

REACTIONS (4)
  - Haematotoxicity [Unknown]
  - Product use issue [Unknown]
  - Off label use [Unknown]
  - Gastrointestinal disorder [Unknown]
